FAERS Safety Report 8869698 (Version 1)
Quarter: 2012Q4

REPORT INFORMATION
  Report Type: Report from Study
  Country: CA (occurrence: CA)
  Receive Date: 20121028
  Receipt Date: 20121028
  Transmission Date: 20130627
  Serious: Yes (Other)
  Sender: FDA-Public Use
  Company Number: CA-JNJFOC-20121010017

PATIENT
  Sex: Female
  Weight: 78.2 kg

DRUGS (2)
  1. REMICADE [Suspect]
     Indication: PSORIASIS
     Dosage: 6 infusions
     Route: 042
  2. ADVAIR [Concomitant]
     Route: 065

REACTIONS (3)
  - Hepatic steatosis [Unknown]
  - Enzyme level increased [Unknown]
  - Eye infection [Recovered/Resolved]
